FAERS Safety Report 8801337 (Version 2)
Quarter: 2012Q4

REPORT INFORMATION
  Report Type: Report from Study
  Country: DE (occurrence: DE)
  Receive Date: 20120921
  Receipt Date: 20121005
  Transmission Date: 20130627
  Serious: Yes (Hospitalization)
  Sender: FDA-Public Use
  Company Number: DE-ABBOTT-12P-062-0979903-00

PATIENT
  Age: 63 Year
  Sex: Male
  Weight: 79 kg

DRUGS (11)
  1. HUMIRA [Suspect]
     Indication: CROHN^S DISEASE
     Route: 058
     Dates: start: 20090210
  2. HUMIRA [Suspect]
     Route: 058
     Dates: start: 20111031, end: 20120222
  3. HUMIRA [Suspect]
     Route: 058
     Dates: start: 20120426, end: 20120426
  4. HUMIRA [Suspect]
     Route: 058
     Dates: start: 20120427
  5. HUMIRA [Suspect]
     Route: 058
     Dates: start: 20120531
  6. HUMIRA [Suspect]
     Route: 058
     Dates: start: 20120816
  7. AZATHIOPRINE [Concomitant]
     Indication: CROHN^S DISEASE
  8. AZATHIOPRINE [Concomitant]
     Dates: start: 200001, end: 20091117
  9. PREDNISONE [Concomitant]
     Indication: CROHN^S DISEASE
  10. PREDNISONE [Concomitant]
     Dosage: 60 mg - 2.5 mg
     Dates: start: 20081230, end: 200903
  11. QUANTALAN [Concomitant]
     Indication: BILE ACID MALABSORPTION
     Dates: start: 20090518

REACTIONS (1)
  - Ileal stenosis [Recovered/Resolved]
